FAERS Safety Report 4951501-9 (Version None)
Quarter: 2006Q1

REPORT INFORMATION
  Report Type: 
  Country: None (occurrence: None)
  Receive Date: 20060317
  Receipt Date: 20060228
  Transmission Date: 20060701
  Serious: Yes (Other)
  Sender: FDA-Public Use
  Company Number: US 0509122282

PATIENT
  Age: 43 Year
  Sex: Female
  Weight: 102.5 kg

DRUGS (14)
  1. ZYPREXA [Suspect]
     Indication: DEPRESSION
     Dosage: SEE IMAGE
     Route: 048
     Dates: start: 19980501, end: 19990401
  2. ZYPREXA [Suspect]
     Indication: DEPRESSION
     Dosage: SEE IMAGE
     Route: 048
     Dates: start: 19991001, end: 20021101
  3. TOPIRAMATE [Concomitant]
  4. VENLAFAXINE HCL [Concomitant]
  5. NEFAZODONE HCL [Concomitant]
  6. TRAZODONE HCL [Concomitant]
  7. RITALIN [Concomitant]
  8. GABAPENTIN [Concomitant]
  9. OMEPRAZOLE [Concomitant]
  10. REGLAN [Concomitant]
  11. ATENOLOL [Concomitant]
  12. HYDROCHLOROTHIAZIDE [Concomitant]
  13. ATENOLOL [Concomitant]
  14. BROMOCRIPTINE MESYLATE [Concomitant]

REACTIONS (24)
  - ANAEMIA HAEMOLYTIC AUTOIMMUNE [None]
  - ARTHRALGIA [None]
  - AUTOIMMUNE DISORDER [None]
  - BLOOD PROLACTIN INCREASED [None]
  - CARDIOMEGALY [None]
  - DIABETES MELLITUS NON-INSULIN-DEPENDENT [None]
  - DRUG INTERACTION [None]
  - EMOTIONAL DISORDER [None]
  - FEAR [None]
  - GALACTORRHOEA [None]
  - GLYCOSYLATED HAEMOGLOBIN INCREASED [None]
  - HAEMATURIA [None]
  - HYPERPHAGIA [None]
  - HYPERSPLENISM [None]
  - INCREASED APPETITE [None]
  - JOINT SWELLING [None]
  - KNEE ARTHROPLASTY [None]
  - NAIL INFECTION [None]
  - OEDEMA PERIPHERAL [None]
  - PAIN [None]
  - SLEEP DISORDER [None]
  - URINARY TRACT INFECTION [None]
  - VAGINAL HAEMORRHAGE [None]
  - WEIGHT INCREASED [None]
